FAERS Safety Report 24864230 (Version 3)
Quarter: 2025Q1

REPORT INFORMATION
  Report Type: Spontaneous
  Country: US (occurrence: US)
  Receive Date: 20250120
  Receipt Date: 20250303
  Transmission Date: 20250409
  Serious: No
  Sender: MERCK SHARP & DOHME LLC
  Company Number: US-009507513-2501USA004416

PATIENT
  Age: 58 Year
  Sex: Female
  Weight: 37.195 kg

DRUGS (23)
  1. SOTATERCEPT [Suspect]
     Active Substance: SOTATERCEPT
  2. SOTATERCEPT [Suspect]
     Active Substance: SOTATERCEPT
     Dates: start: 20250104
  3. SOTATERCEPT [Suspect]
     Active Substance: SOTATERCEPT
     Dates: start: 20250214
  4. SOTATERCEPT [Suspect]
     Active Substance: SOTATERCEPT
  5. REMODULIN [Suspect]
     Active Substance: TREPROSTINIL
     Indication: Pulmonary arterial hypertension
     Route: 041
  6. REMODULIN [Suspect]
     Active Substance: TREPROSTINIL
     Indication: Pulmonary arterial hypertension
     Route: 041
  7. REMODULIN [Suspect]
     Active Substance: TREPROSTINIL
     Indication: Pulmonary arterial hypertension
     Route: 041
     Dates: start: 20231023
  8. REMODULIN [Suspect]
     Active Substance: TREPROSTINIL
     Indication: Pulmonary arterial hypertension
     Route: 041
  9. DIAZEPAM [Concomitant]
     Active Substance: DIAZEPAM
  10. SPIRONOLACTONE [Concomitant]
     Active Substance: SPIRONOLACTONE
  11. OXYGEN [Concomitant]
     Active Substance: OXYGEN
  12. LORATADINE [Concomitant]
     Active Substance: LORATADINE
  13. VITAMIN C [Concomitant]
     Active Substance: ASCORBIC ACID
  14. SODIUM CHLORIDE [Concomitant]
     Active Substance: SODIUM CHLORIDE
  15. GAVISCON [Concomitant]
     Active Substance: ALUMINUM HYDROXIDE\MAGNESIUM CARBONATE
  16. IBUPROFEN [Concomitant]
     Active Substance: IBUPROFEN
  17. TYLENOL [Concomitant]
     Active Substance: ACETAMINOPHEN
  18. OPSUMIT [Concomitant]
     Active Substance: MACITENTAN
  19. LASIX [Concomitant]
     Active Substance: FUROSEMIDE
  20. ARNICA MONTANA FLOWER [Concomitant]
     Active Substance: ARNICA MONTANA FLOWER
  21. VITAMIN D3 [Concomitant]
     Active Substance: CHOLECALCIFEROL
  22. CHLORPHENIRAMINE MALEATE [Concomitant]
     Active Substance: CHLORPHENIRAMINE MALEATE
  23. Aloe vera;Lidocaine [Concomitant]

REACTIONS (14)
  - Dizziness [Unknown]
  - Skin haemorrhage [Unknown]
  - Erythema [Unknown]
  - Ocular discomfort [Unknown]
  - Injection site vesicles [Unknown]
  - Anisocoria [Unknown]
  - Wrong technique in product usage process [Unknown]
  - Injection site bruising [Unknown]
  - Vision blurred [Unknown]
  - Headache [Unknown]
  - Miosis [Unknown]
  - Lacrimation increased [Unknown]
  - Therapeutic product effect delayed [Unknown]
  - Inappropriate schedule of product administration [Unknown]

NARRATIVE: CASE EVENT DATE: 20250104
